FAERS Safety Report 4905341-7 (Version None)
Quarter: 2006Q1

REPORT INFORMATION
  Report Type: 
  Country: None (occurrence: None)
  Receive Date: 20060207
  Receipt Date: 20060207
  Transmission Date: 20060701
  Serious: Yes (Hospitalization)
  Sender: FDA-Public Use
  Company Number: None

PATIENT
  Age: 74 Year
  Sex: Male
  Weight: 37.331 kg

DRUGS (1)
  1. ETODOLAC [Suspect]
     Indication: ARTHRALGIA
     Dosage: 400 MG   TWICE A DAY   PO
     Route: 048
     Dates: start: 20050609, end: 20050707

REACTIONS (1)
  - HAEMATEMESIS [None]
